APPROVED DRUG PRODUCT: CITALOPRAM HYDROBROMIDE
Active Ingredient: CITALOPRAM HYDROBROMIDE
Strength: EQ 10MG BASE
Dosage Form/Route: TABLET;ORAL
Application: A077033 | Product #001
Applicant: HERITAGE PHARMA LABS INC
Approved: Oct 28, 2004 | RLD: No | RS: No | Type: DISCN